FAERS Safety Report 10476007 (Version 1)
Quarter: 2014Q3

REPORT INFORMATION
  Report Type: Spontaneous
  Country: CH (occurrence: CH)
  Receive Date: 20140925
  Receipt Date: 20140925
  Transmission Date: 20150326
  Serious: Yes (Other)
  Sender: FDA-Public Use
  Company Number: CH-PFIZER INC-2014262146

PATIENT
  Age: 22 Year
  Sex: Female

DRUGS (2)
  1. KEFZOL [Concomitant]
     Active Substance: CEFAZOLIN SODIUM
     Indication: INFECTION PROPHYLAXIS
  2. SAYANA [Suspect]
     Active Substance: MEDROXYPROGESTERONE

REACTIONS (1)
  - Vein disorder [Unknown]
